FAERS Safety Report 7827427-X (Version None)
Quarter: 2011Q4

REPORT INFORMATION
  Report Type: 
  Country: None (occurrence: None)
  Receive Date: 20111020
  Receipt Date: 20110714
  Transmission Date: 20120403
  Serious: Yes (Other)
  Sender: FDA-Public Use
  Company Number: US-BAYER-2011-066942

PATIENT
  Age: 67 Year
  Sex: Female
  Weight: 68 kg

DRUGS (6)
  1. RESPIRATORY SYSTEM [Concomitant]
  2. CHOLESTEROL- AND TRIGLYCERIDE REDUCERS [Concomitant]
  3. SUPPLEMENTS [Concomitant]
  4. VITAMIN TAB [Concomitant]
  5. ANTI-DIABETICS [Concomitant]
  6. ASPIRIN [Suspect]
     Indication: PRODUCT USED FOR UNKNOWN INDICATION
     Dosage: COUNT SIZE 20S

REACTIONS (2)
  - DYSPHAGIA [None]
  - CHOKING [None]
